FAERS Safety Report 25414968 (Version 1)
Quarter: 2025Q2

REPORT INFORMATION
  Report Type: Spontaneous
  Country: CN (occurrence: CN)
  Receive Date: 20250609
  Receipt Date: 20250609
  Transmission Date: 20250717
  Serious: Yes (Hospitalization)
  Sender: ASTELLAS
  Company Number: CN-ASTELLAS-2025-AER-030891

PATIENT
  Age: 55 Year
  Sex: Male
  Weight: 50 kg

DRUGS (1)
  1. ISAVUCONAZOLE [Suspect]
     Active Substance: ISAVUCONAZOLE
     Indication: Antifungal treatment
     Dosage: CONCENTRATE FOR SOLUTION FOR INFUSION
     Route: 042
     Dates: start: 20250428, end: 20250514

REACTIONS (1)
  - Liver injury [Recovering/Resolving]

NARRATIVE: CASE EVENT DATE: 20250514
